FAERS Safety Report 22715811 (Version 5)
Quarter: 2024Q2

REPORT INFORMATION
  Report Type: Spontaneous
  Country: US (occurrence: US)
  Receive Date: 20230718
  Receipt Date: 20240508
  Transmission Date: 20240716
  Serious: No
  Sender: FDA-Public Use
  Company Number: US-GLAXOSMITHKLINE-US2023094531

PATIENT
  Sex: Female
  Weight: 93 kg

DRUGS (7)
  1. ZEJULA [Suspect]
     Active Substance: NIRAPARIB
     Indication: Ovarian cancer
     Dosage: 200 MG, QD
     Dates: start: 20230525
  2. ZEJULA [Suspect]
     Active Substance: NIRAPARIB
     Dosage: 200 MG, QD
  3. ZEJULA [Suspect]
     Active Substance: NIRAPARIB
     Dosage: 300 MG, QD
     Route: 048
  4. ZEJULA [Suspect]
     Active Substance: NIRAPARIB
     Dosage: 100 MG
     Dates: start: 20230707
  5. ZEJULA [Suspect]
     Active Substance: NIRAPARIB
     Dosage: 100 MG, QD
     Route: 048
  6. ZEJULA [Suspect]
     Active Substance: NIRAPARIB
     Indication: Ovarian cancer
     Dosage: 100 MG, QD
  7. ZEJULA [Suspect]
     Active Substance: NIRAPARIB
     Dosage: 100 MG, QD
     Dates: start: 20230525

REACTIONS (30)
  - Liver function test abnormal [Unknown]
  - Feeling abnormal [Unknown]
  - Insomnia [Unknown]
  - Fatigue [Recovering/Resolving]
  - Nausea [Recovering/Resolving]
  - Arthritis [Unknown]
  - Arthralgia [Recovering/Resolving]
  - Muscle spasms [Unknown]
  - Oral discomfort [Unknown]
  - Tongue coated [Unknown]
  - Ageusia [Unknown]
  - Dysgeusia [Unknown]
  - Anhedonia [Recovering/Resolving]
  - Asthenia [Recovering/Resolving]
  - Illness [Unknown]
  - Haemoglobin decreased [Unknown]
  - Paraesthesia [Unknown]
  - Hypoaesthesia [Unknown]
  - Blood magnesium decreased [Unknown]
  - COVID-19 [Unknown]
  - Oral fungal infection [Unknown]
  - Pain [Unknown]
  - Stomatitis [Unknown]
  - Throat irritation [Unknown]
  - Oral pain [Unknown]
  - Blood glucose increased [Unknown]
  - Constipation [Unknown]
  - Cough [Unknown]
  - Oral candidiasis [Unknown]
  - Product dose omission in error [Unknown]
